FAERS Safety Report 17985092 (Version 1)
Quarter: 2020Q3

REPORT INFORMATION
  Report Type: Spontaneous
  Country: FR (occurrence: FR)
  Receive Date: 20200706
  Receipt Date: 20200706
  Transmission Date: 20201103
  Serious: Yes (Other)
  Sender: FDA-Public Use
  Company Number: FR-TEVA-2020-FR-1795624

PATIENT
  Age: 63 Year
  Sex: Female

DRUGS (2)
  1. LEXOMIL ROCHE [Suspect]
     Active Substance: BROMAZEPAM
     Dosage: UP TO 10 TABLETS PER DAY
     Route: 048
     Dates: start: 201911
  2. TRAMADOL BASE [Suspect]
     Active Substance: TRAMADOL
     Dosage: UP TO 8 TABLETS PER DAY
     Route: 048
     Dates: start: 201911

REACTIONS (1)
  - Drug dependence [Not Recovered/Not Resolved]

NARRATIVE: CASE EVENT DATE: 201911
